FAERS Safety Report 5265541-6 (Version None)
Quarter: 2007Q1

REPORT INFORMATION
  Report Type: 
  Country: None (occurrence: None)
  Receive Date: 20070314
  Receipt Date: 20070306
  Transmission Date: 20070707
  Serious: Yes (Hospitalization)
  Sender: FDA-Public Use
  Company Number: SE-PFIZER INC-2007017227

PATIENT
  Sex: Male

DRUGS (2)
  1. SALAZOPRIN [Suspect]
     Indication: RHEUMATOID ARTHRITIS
     Route: 048
     Dates: start: 20061001, end: 20061208
  2. PREDNISOLONE [Concomitant]

REACTIONS (3)
  - MENINGISM [None]
  - NEUTROPENIA [None]
  - RASH [None]
